FAERS Safety Report 15545965 (Version 3)
Quarter: 2019Q1

REPORT INFORMATION
  Report Type: Spontaneous
  Country: FR (occurrence: FR)
  Receive Date: 20181024
  Receipt Date: 20190328
  Transmission Date: 20190417
  Serious: Yes (Hospitalization)
  Sender: FDA-Public Use
  Company Number: FR-NAPPMUNDI-GBR-2018-0060667

PATIENT
  Sex: Female
  Weight: 33 kg

DRUGS (6)
  1. DUROGESIC [Suspect]
     Active Substance: FENTANYL
     Indication: PAIN
     Dosage: 12 MCG, Q3D
     Route: 062
     Dates: start: 20180227, end: 20180308
  2. INSTANYL [Suspect]
     Active Substance: FENTANYL
     Indication: PAIN
     Dosage: UNK
     Route: 045
  3. ZITHROMAX [Suspect]
     Active Substance: AZITHROMYCIN DIHYDRATE
     Indication: BRONCHITIS
     Dosage: 500 MG, DAILY (STRENGTH 250 MG)
     Route: 048
     Dates: start: 19990301, end: 19990303
  4. OXYCODONE HYDROCHLORIDE. [Suspect]
     Active Substance: OXYCODONE HYDROCHLORIDE
     Indication: PAIN
     Dosage: 5 MG, DAILY
     Route: 048
     Dates: start: 20180227, end: 20180308
  5. NEURONTIN [Suspect]
     Active Substance: GABAPENTIN
     Indication: NEURALGIA
     Dosage: 3 DF, DAILY (STRENGTH 100MG)
     Route: 048
     Dates: start: 20180227, end: 20180309
  6. DUROGESIC [Suspect]
     Active Substance: FENTANYL
     Dosage: 25 MCG, Q3D
     Route: 062
     Dates: start: 20180227, end: 20180308

REACTIONS (15)
  - Death [Not Recovered/Not Resolved]
  - Renal failure [Not Recovered/Not Resolved]
  - Atrial fibrillation [Not Recovered/Not Resolved]
  - Cerebrovascular accident [Not Recovered/Not Resolved]
  - Fall [Not Recovered/Not Resolved]
  - Nausea [Not Recovered/Not Resolved]
  - Osteoporosis [Not Recovered/Not Resolved]
  - Hepatic failure [Not Recovered/Not Resolved]
  - Coma [Not Recovered/Not Resolved]
  - Respiratory distress [Not Recovered/Not Resolved]
  - Autoimmune hepatitis [Not Recovered/Not Resolved]
  - Vomiting [Not Recovered/Not Resolved]
  - Respiratory failure [Not Recovered/Not Resolved]
  - Acute pulmonary oedema [Recovered/Resolved]
  - Pleurisy [Not Recovered/Not Resolved]

NARRATIVE: CASE EVENT DATE: 1999
